FAERS Safety Report 6704079-3 (Version None)
Quarter: 2010Q2

REPORT INFORMATION
  Report Type: 
  Country: None (occurrence: None)
  Receive Date: 20100423
  Receipt Date: 20100213
  Transmission Date: 20101027
  Serious: No
  Sender: FDA-Public Use
  Company Number: ALL1-2010-00870

PATIENT
  Age: 56 Year
  Sex: Male
  Weight: 74.8 kg

DRUGS (2)
  1. VYVANSE [Suspect]
     Indication: ATTENTION DEFICIT/HYPERACTIVITY DISORDER
     Dosage: 70 MG, 1X/DAY:QD, ORAL
     Route: 048
     Dates: start: 20100213, end: 20100213
  2. XANAX [Concomitant]

REACTIONS (4)
  - ACTIVITIES OF DAILY LIVING IMPAIRED [None]
  - CONFUSIONAL STATE [None]
  - DYSPNOEA [None]
  - FEAR [None]
